FAERS Safety Report 9958569 (Version 2)
Quarter: 2014Q1

REPORT INFORMATION
  Report Type: Spontaneous
  Country: JP (occurrence: JP)
  Receive Date: 20140305
  Receipt Date: 20140312
  Transmission Date: 20141002
  Serious: Yes (Other)
  Sender: FDA-Public Use
  Company Number: JP-OTSUKA-JP-2014-12147

PATIENT
  Age: 80 Year
  Sex: 0

DRUGS (9)
  1. SAMSCA [Suspect]
     Indication: CARDIAC FAILURE
     Dosage: 7.5 MG MILLIGRAM(S), DAILY DOSE
     Route: 048
     Dates: start: 20130923
  2. WARFARIN K [Suspect]
     Dosage: 1 MG MILLIGRAM(S), DAILY DOSE
     Route: 048
  3. MAGMITT [Concomitant]
     Dosage: 1500 MG MILLIGRAM(S), DAILY DOSE
     Route: 048
  4. BISOLVON [Concomitant]
     Dosage: 3 DF DOSAGE FORM, DAILY DOSE
     Route: 048
  5. MAINTATE [Concomitant]
     Dosage: 2.5 MG MILLIGRAM(S), DAILY DOSE
     Route: 048
  6. FERROMIA [Concomitant]
     Dosage: 100 MG MILLIGRAM(S), DAILY DOSE
     Route: 048
  7. DIART [Concomitant]
     Dosage: 30 MG MILLIGRAM(S), DAILY DOSE
     Route: 048
  8. VASOLAN [Concomitant]
     Dosage: 80 MG MILLIGRAM(S), DAILY DOSE
     Route: 048
  9. LASIX [Concomitant]
     Dosage: 80 MG MILLIGRAM(S), DAILY DOSE
     Route: 048

REACTIONS (2)
  - International normalised ratio increased [Unknown]
  - Melaena [Recovered/Resolved]
